FAERS Safety Report 14692632 (Version 1)
Quarter: 2018Q1

REPORT INFORMATION
  Report Type: Spontaneous
  Country: GB (occurrence: GB)
  Receive Date: 20180329
  Receipt Date: 20180329
  Transmission Date: 20180509
  Serious: Yes (Other)
  Sender: FDA-Public Use
  Company Number: GB-AUROBINDO-AUR-APL-2018-016042

PATIENT
  Age: 13 Year
  Sex: Male

DRUGS (1)
  1. ZOLEDRONIC ACID [Suspect]
     Active Substance: ZOLEDRONIC ACID
     Indication: OSTEOGENESIS IMPERFECTA
     Dosage: 0.05 MILLIGRAM/KILOGRAM, DAILY (SINGLE DOSE 6 MONTHLY)
     Route: 065

REACTIONS (2)
  - Femur fracture [Unknown]
  - Musculoskeletal stiffness [Unknown]
